FAERS Safety Report 25964298 (Version 4)
Quarter: 2025Q4

REPORT INFORMATION
  Report Type: Report from Study
  Country: CA (occurrence: CA)
  Receive Date: 20251027
  Receipt Date: 20251221
  Transmission Date: 20260117
  Serious: Yes (Life-Threatening, Hospitalization)
  Sender: GLAXOSMITHKLINE
  Company Number: CA-GSK-CA2025112993

PATIENT
  Age: 69 Year
  Sex: Female

DRUGS (2)
  1. DOSTARLIMAB [Suspect]
     Active Substance: DOSTARLIMAB
     Indication: Endometrial cancer
     Dosage: 500 MG, Q3W, FOR DOSE 1-6; THEN 1000 MG EVERY 6 WEEKS
  2. DOSTARLIMAB [Suspect]
     Active Substance: DOSTARLIMAB
     Dosage: 500 MG, Q3W FOR DOSE 1-6, THEN 1000 MG Q6W

REACTIONS (15)
  - Chills [Unknown]
  - Back injury [Unknown]
  - Nausea [Unknown]
  - Dyspepsia [Not Recovered/Not Resolved]
  - Vomiting [Recovering/Resolving]
  - Constipation [Not Recovered/Not Resolved]
  - Faeces hard [Unknown]
  - Diarrhoea [Unknown]
  - Sciatica [Unknown]
  - Defaecation urgency [Unknown]
  - Flushing [Unknown]
  - Pain [Unknown]
  - Lumbar radiculopathy [Unknown]
  - Intervertebral disc protrusion [Unknown]
  - Poor venous access [Unknown]

NARRATIVE: CASE EVENT DATE: 20250922
